FAERS Safety Report 20941545 (Version 1)
Quarter: 2022Q2

REPORT INFORMATION
  Report Type: Spontaneous
  Country: US (occurrence: US)
  Receive Date: 20220610
  Receipt Date: 20220610
  Transmission Date: 20220721
  Serious: No
  Sender: FDA-Public Use
  Company Number: US-STRIDES ARCOLAB LIMITED-2022SP005024

PATIENT
  Age: 55 Year
  Sex: Female

DRUGS (2)
  1. AMANTADINE [Suspect]
     Active Substance: AMANTADINE
     Indication: Progressive supranuclear palsy
     Dosage: 100 MILLIGRAM, AT 7 PM AND 12 PM (BID)
     Route: 065
  2. OXCARBAZEPINE [Concomitant]
     Active Substance: OXCARBAZEPINE
     Indication: Progressive supranuclear palsy
     Dosage: UNK
     Route: 065

REACTIONS (1)
  - Off label use [Unknown]
